FAERS Safety Report 6209719-3 (Version None)
Quarter: 2009Q2

REPORT INFORMATION
  Report Type: 
  Country: None (occurrence: None)
  Receive Date: 20090601
  Receipt Date: 20090526
  Transmission Date: 20091009
  Serious: Yes (Hospitalization)
  Sender: FDA-Public Use
  Company Number: FR-ASTRAZENECA-2009CG01007

PATIENT
  Age: 24952 Day
  Sex: Male

DRUGS (8)
  1. OMEPRAZOLE [Suspect]
     Route: 048
     Dates: start: 20081205, end: 20081219
  2. DI HYDAN [Suspect]
     Route: 048
     Dates: start: 20081107, end: 20081219
  3. NIMOTOP [Suspect]
     Route: 048
     Dates: start: 20081107, end: 20081205
  4. NIMOTOP [Suspect]
     Route: 048
     Dates: start: 20081210, end: 20081215
  5. TAHOR [Suspect]
     Route: 048
     Dates: start: 20081110, end: 20081219
  6. LOVENOX [Suspect]
     Route: 058
     Dates: start: 20081107, end: 20081219
  7. INIPOMP [Suspect]
     Route: 048
     Dates: start: 20081118, end: 20081205
  8. XATRAL [Concomitant]
     Route: 048

REACTIONS (1)
  - DRUG RASH WITH EOSINOPHILIA AND SYSTEMIC SYMPTOMS [None]
